FAERS Safety Report 8659288 (Version 2)
Quarter: 2014Q1

REPORT INFORMATION
  Report Type: Spontaneous
  Country: BR (occurrence: BR)
  Receive Date: 20120711
  Receipt Date: 20140205
  Transmission Date: 20141002
  Serious: Yes (Other)
  Sender: FDA-Public Use
  Company Number: BR-JNJFOC-20120611141

PATIENT
  Sex: Female
  Weight: 71 kg

DRUGS (13)
  1. REMICADE [Suspect]
     Indication: PSORIASIS
     Route: 042
     Dates: start: 20120224
  2. REMICADE [Suspect]
     Indication: PSORIASIS
     Dosage: 56 TH DAY
     Route: 042
     Dates: start: 201201
  3. REMICADE [Suspect]
     Indication: PSORIASIS
     Route: 042
     Dates: start: 2011
  4. REMICADE [Suspect]
     Indication: RHEUMATOID ARTHRITIS
     Route: 042
     Dates: start: 2011
  5. REMICADE [Suspect]
     Indication: RHEUMATOID ARTHRITIS
     Dosage: 56 TH DAY
     Route: 042
     Dates: start: 201201
  6. REMICADE [Suspect]
     Indication: RHEUMATOID ARTHRITIS
     Route: 042
     Dates: start: 20120224
  7. INSULIN [Concomitant]
     Indication: DIABETES MELLITUS
     Route: 065
  8. ARADOIS [Concomitant]
     Indication: HYPERTENSION
     Route: 065
  9. AMLODIPINE [Concomitant]
     Indication: HYPERTENSION
     Route: 065
  10. SIMVASTATIN [Concomitant]
     Indication: HYPERCHOLESTEROLAEMIA
     Route: 065
  11. VITAMIN B COMPLEX [Concomitant]
     Indication: RENAL DISORDER
     Route: 065
     Dates: start: 2013
  12. ROSUVASTATIN [Concomitant]
     Indication: PROPHYLAXIS
     Route: 065
     Dates: start: 201307
  13. FOLIC ACID [Concomitant]
     Indication: RENAL DISORDER
     Route: 065
     Dates: start: 2013

REACTIONS (5)
  - Renal failure [Unknown]
  - Urinary tract infection [Recovered/Resolved]
  - Pruritus generalised [Recovered/Resolved]
  - Neuropathy peripheral [Not Recovered/Not Resolved]
  - Infusion related reaction [Recovered/Resolved]
